FAERS Safety Report 5122263-X (Version None)
Quarter: 2006Q4

REPORT INFORMATION
  Report Type: 
  Country: None (occurrence: None)
  Receive Date: 20061006
  Receipt Date: 20060714
  Transmission Date: 20070319
  Serious: Yes (Hospitalization)
  Sender: FDA-Public Use
  Company Number: US-BRISTOL-MYERS SQUIBB COMPANY-13443080

PATIENT
  Age: 73 Year
  Sex: Male
  Weight: 84 kg

DRUGS (8)
  1. COUMADIN [Suspect]
     Indication: ATRIAL FIBRILLATION
     Route: 048
     Dates: start: 19960101, end: 20050801
  2. LANOXIN [Concomitant]
     Dates: start: 19960101
  3. NEURONTIN [Concomitant]
     Dates: start: 19960101, end: 20050801
  4. REQUIP [Concomitant]
     Dates: start: 19960101
  5. AMANTADINE HCL [Concomitant]
     Dates: start: 19960101, end: 20050801
  6. PROSCAR [Concomitant]
     Dates: start: 19960101, end: 20060401
  7. FLOMAX [Concomitant]
  8. TIMOLOL MALEATE [Concomitant]
     Dates: start: 19960101

REACTIONS (3)
  - CEREBROVASCULAR ACCIDENT [None]
  - FALL [None]
  - HALLUCINATION [None]
